FAERS Safety Report 5106680-X (Version None)
Quarter: 2006Q3

REPORT INFORMATION
  Report Type: 
  Country: None (occurrence: None)
  Receive Date: 20060913
  Receipt Date: 20060823
  Transmission Date: 20061208
  Serious: Yes (Hospitalization, Other)
  Sender: FDA-Public Use
  Company Number: EWC040539348

PATIENT
  Age: 47 Year
  Sex: Female
  Weight: 110 kg

DRUGS (7)
  1. HUMATROPE [Suspect]
     Indication: GROWTH HORMONE DEFICIENCY
     Dosage: 1.5 IU, DAILY (1/D), SUBCUTANEOUS
     Route: 058
     Dates: start: 19970101, end: 20040512
  2. HYDROCORTISONE [Concomitant]
  3. L-THYROXINE (LEVOTHYROXINE SODIUM) [Concomitant]
  4. DESMOPRESSIN ACETATE [Concomitant]
  5. ESTROGENS [Concomitant]
  6. PROGESTERONE [Concomitant]
  7. LOKREN (BETAXOLOL HYDROCHLORIDE) [Concomitant]

REACTIONS (5)
  - APHASIA [None]
  - CALCINOSIS [None]
  - MENINGIOMA [None]
  - NON-HODGKIN'S LYMPHOMA STAGE II [None]
  - POST PROCEDURAL COMPLICATION [None]
